FAERS Safety Report 5036584-2 (Version None)
Quarter: 2006Q2

REPORT INFORMATION
  Report Type: 
  Country: None (occurrence: None)
  Receive Date: 20060623
  Receipt Date: 20060606
  Transmission Date: 20061013
  Serious: Yes (Hospitalization)
  Sender: FDA-Public Use
  Company Number: DE200606001540

PATIENT
  Sex: Female
  Weight: 65.0005 kg

DRUGS (3)
  1. GEMCITABINE [Suspect]
     Indication: BREAST CANCER
     Dosage: 1700 MG INTRAVENOUS
     Route: 042
     Dates: start: 20060531
  2. DOCETAXEL (DOCETAXEL) [Suspect]
     Indication: BREAST CANCER
     Dosage: 127.5 MG INTRAVENOUS
     Route: 042
     Dates: start: 20060531
  3. GRANOCYTE                          (LENOGRASTIM) [Concomitant]

REACTIONS (4)
  - ALANINE AMINOTRANSFERASE INCREASED [None]
  - ASPARTATE AMINOTRANSFERASE INCREASED [None]
  - BILIARY DILATATION [None]
  - GAMMA-GLUTAMYLTRANSFERASE INCREASED [None]
